FAERS Safety Report 13358659 (Version 1)
Quarter: 2017Q1

REPORT INFORMATION
  Report Type: Spontaneous
  Country: US (occurrence: US)
  Receive Date: 20170322
  Receipt Date: 20170322
  Transmission Date: 20170429
  Serious: No
  Sender: FDA-Public Use
  Company Number: US-BIOGEN-2017BI00373230

PATIENT
  Sex: Female

DRUGS (1)
  1. TECFIDERA [Suspect]
     Active Substance: DIMETHYL FUMARATE
     Indication: MULTIPLE SCLEROSIS
     Route: 065
     Dates: start: 20150317, end: 20170101

REACTIONS (6)
  - Multiple sclerosis [Not Recovered/Not Resolved]
  - Erythema [Recovered/Resolved]
  - Hemianaesthesia [Not Recovered/Not Resolved]
  - Feeling hot [Recovered/Resolved]
  - Malaise [Not Recovered/Not Resolved]
  - Pruritus [Recovered/Resolved]
